FAERS Safety Report 20126104 (Version 1)
Quarter: 2021Q4

REPORT INFORMATION
  Report Type: Report from Study
  Country: FR (occurrence: FR)
  Receive Date: 20211129
  Receipt Date: 20211129
  Transmission Date: 20220304
  Serious: Yes (Hospitalization)
  Sender: FDA-Public Use
  Company Number: FR-SA-SAC20211118001090

PATIENT
  Age: 17 Year
  Sex: Female

DRUGS (3)
  1. SERETIDE DISKUS [FLUTICASONE PROPIONATE;SALMETEROL] [Concomitant]
     Indication: Product used for unknown indication
     Dosage: 2 DF, QD (FOR 16 MONTHS)
     Route: 065
  2. MONTELUKAST [Concomitant]
     Active Substance: MONTELUKAST SODIUM
     Indication: Product used for unknown indication
     Dosage: 10 MG, QD
     Route: 065
  3. ATROVENT [Suspect]
     Active Substance: IPRATROPIUM BROMIDE
     Indication: Asthma
     Dosage: SPRAY
     Route: 065

REACTIONS (1)
  - Asthma [Unknown]
